FAERS Safety Report 5765081-1 (Version None)
Quarter: 2008Q2

REPORT INFORMATION
  Report Type: 
  Country: None (occurrence: None)
  Receive Date: 20080611
  Receipt Date: 20080530
  Transmission Date: 20081010
  Serious: Yes (Other)
  Sender: FDA-Public Use
  Company Number: US-ELI_LILLY_AND_COMPANY-US200806000226

PATIENT
  Sex: Female
  Weight: 80.726 kg

DRUGS (6)
  1. BYETTA [Suspect]
     Indication: TYPE 2 DIABETES MELLITUS
     Dosage: 10 UG, 2/D
     Route: 058
     Dates: start: 20060101
  2. LEXAPRO [Concomitant]
     Dosage: UNK, UNKNOWN
     Dates: start: 20040101
  3. ARIMIDEX [Concomitant]
     Indication: NEOPLASM MALIGNANT
     Dosage: UNK, UNKNOWN
  4. ASPIRIN [Concomitant]
     Dosage: UNK, UNKNOWN
  5. ZETIA [Concomitant]
     Indication: PROPHYLAXIS
     Dosage: UNK, UNKNOWN
  6. VITAMINS [Concomitant]
     Dosage: UNK, UNKNOWN

REACTIONS (7)
  - BLOOD GLUCOSE DECREASED [None]
  - BLOOD GLUCOSE INCREASED [None]
  - HYPERHIDROSIS [None]
  - HYPOGLYCAEMIA [None]
  - STRESS [None]
  - SYNCOPE [None]
  - WEIGHT DECREASED [None]
